FAERS Safety Report 10180665 (Version 1)
Quarter: 2014Q2

REPORT INFORMATION
  Report Type: Spontaneous
  Country: US (occurrence: US)
  Receive Date: 20140519
  Receipt Date: 20140519
  Transmission Date: 20141212
  Serious: No
  Sender: FDA-Public Use
  Company Number: US-AMGEN INC.-USASP2014022078

PATIENT
  Age: 62 Year
  Sex: Female

DRUGS (6)
  1. PROLIA [Suspect]
     Indication: OSTEOPOROSIS
     Dosage: UNK
     Route: 065
     Dates: start: 2011
  2. MOBIC [Concomitant]
     Indication: ARTHRITIS
  3. POTASSIUM [Concomitant]
     Indication: FLUID IMBALANCE
  4. TRIAMTERENE AND HYDROCHLOROTHIAZID [Concomitant]
  5. ATORVASTATIN [Concomitant]
  6. GLUCOSAMINE [Concomitant]
     Indication: ARTHRITIS

REACTIONS (1)
  - Bone loss [Unknown]
